FAERS Safety Report 4900030-7 (Version None)
Quarter: 2006Q1

REPORT INFORMATION
  Report Type: 
  Country: None (occurrence: None)
  Receive Date: 20060203
  Receipt Date: 20060127
  Transmission Date: 20060701
  Serious: Yes (Other)
  Sender: FDA-Public Use
  Company Number: PHEH2006US01445

PATIENT
  Age: 33 Year
  Sex: Male

DRUGS (1)
  1. ZELNORM [Suspect]

REACTIONS (1)
  - HAEMATOCHEZIA [None]
